FAERS Safety Report 18013478 (Version 1)
Quarter: 2020Q3

REPORT INFORMATION
  Report Type: Spontaneous
  Country: US (occurrence: US)
  Receive Date: 20200710
  Receipt Date: 20200710
  Transmission Date: 20201103
  Serious: No
  Sender: FDA-Public Use
  Company Number: None

PATIENT
  Sex: Female
  Weight: 110.25 kg

DRUGS (8)
  1. FERROUS FUMERATE [Concomitant]
     Active Substance: FERROUS FUMARATE
  2. CELEXA [Concomitant]
     Active Substance: CITALOPRAM HYDROBROMIDE
  3. DEPO?PROVERA [Suspect]
     Active Substance: MEDROXYPROGESTERONE ACETATE
     Indication: CONTRACEPTION
     Dates: start: 20200604
  4. SINGULAIR [Concomitant]
     Active Substance: MONTELUKAST SODIUM
  5. VENTOLIN [Concomitant]
     Active Substance: ALBUTEROL SULFATE
  6. FLOVENT [Concomitant]
     Active Substance: FLUTICASONE PROPIONATE
  7. LEVOTHYROXINE. [Concomitant]
     Active Substance: LEVOTHYROXINE
  8. DULERA [Concomitant]
     Active Substance: FORMOTEROL FUMARATE DIHYDRATE\MOMETASONE FUROATE

REACTIONS (9)
  - Nipple pain [None]
  - Dry skin [None]
  - Pruritus [None]
  - Nipple disorder [None]
  - Fatigue [None]
  - Lethargy [None]
  - Anger [None]
  - Breast haemorrhage [None]
  - Mood swings [None]
